FAERS Safety Report 16919883 (Version 1)
Quarter: 2019Q4

REPORT INFORMATION
  Report Type: Spontaneous
  Country: US (occurrence: US)
  Receive Date: 20191015
  Receipt Date: 20191015
  Transmission Date: 20200122
  Serious: Yes (Other)
  Sender: FDA-Public Use
  Company Number: US-PFIZER INC-2019434866

PATIENT
  Age: 57 Year
  Sex: Male

DRUGS (12)
  1. KORLYM [Suspect]
     Active Substance: MIFEPRISTONE
     Indication: CUSHING^S SYNDROME
     Dosage: 300 MG, 1X/DAY
     Route: 048
     Dates: start: 20180531, end: 20180716
  2. LOSARTAN. [Concomitant]
     Active Substance: LOSARTAN
     Dosage: UNK
  3. ALDACTONE [Suspect]
     Active Substance: SPIRONOLACTONE
     Dosage: UNK
     Dates: end: 2019
  4. HUMALOG [Concomitant]
     Active Substance: INSULIN LISPRO
     Dosage: UNK
  5. ASA [Concomitant]
     Active Substance: ASPIRIN
     Dosage: UNK
  6. ATORVASTATIN [Concomitant]
     Active Substance: ATORVASTATIN
     Dosage: UNK
  7. LASIX [Concomitant]
     Active Substance: FUROSEMIDE
     Dosage: UNK
  8. METFORMIN [Concomitant]
     Active Substance: METFORMIN HYDROCHLORIDE
     Dosage: UNK
  9. EPLERENONE. [Concomitant]
     Active Substance: EPLERENONE
     Dosage: UNK
  10. KORLYM [Suspect]
     Active Substance: MIFEPRISTONE
     Dosage: 600 MG, 1X/DAY
     Route: 048
     Dates: start: 20180717
  11. PANTOPRAZOLE [Concomitant]
     Active Substance: PANTOPRAZOLE
     Dosage: UNK
  12. JARDIANCE [Concomitant]
     Active Substance: EMPAGLIFLOZIN
     Dosage: UNK

REACTIONS (15)
  - Breast cancer [Unknown]
  - Stress [Unknown]
  - Breast pain [Recovering/Resolving]
  - Glycosylated haemoglobin increased [Unknown]
  - Blood pressure fluctuation [Unknown]
  - Vomiting [Recovering/Resolving]
  - Influenza [Recovering/Resolving]
  - Gynaecomastia [Unknown]
  - Breast disorder [Recovering/Resolving]
  - Malaise [Recovered/Resolved]
  - Blood pressure increased [Not Recovered/Not Resolved]
  - Weight decreased [Unknown]
  - Hypokalaemia [Recovered/Resolved]
  - Headache [Unknown]
  - Nasopharyngitis [Recovering/Resolving]

NARRATIVE: CASE EVENT DATE: 201901
